FAERS Safety Report 8414398-0 (Version None)
Quarter: 2012Q2

REPORT INFORMATION
  Report Type: 
  Country: None (occurrence: None)
  Receive Date: 20120605
  Receipt Date: 20120523
  Transmission Date: 20120825
  Serious: Yes (Hospitalization)
  Sender: FDA-Public Use
  Company Number: US-BAXTER-2012BAX006385

PATIENT
  Sex: Female
  Weight: 188.18 kg

DRUGS (6)
  1. LEVOXYL [Concomitant]
  2. VITAMIN B COMPLEX CAP [Concomitant]
  3. VITAMIN D [Concomitant]
  4. LIPITOR [Concomitant]
  5. GAMMAGARD LIQUID [Suspect]
     Route: 042
     Dates: start: 20060201, end: 20060701
  6. FOLIC ACID [Concomitant]

REACTIONS (4)
  - NAUSEA [None]
  - MALAISE [None]
  - ASTHENIA [None]
  - SOMNOLENCE [None]
